FAERS Safety Report 23923283 (Version 1)
Quarter: 2024Q2

REPORT INFORMATION
  Report Type: Spontaneous
  Country: US (occurrence: US)
  Receive Date: 20240531
  Receipt Date: 20240531
  Transmission Date: 20240715
  Serious: No
  Sender: FDA-Public Use
  Company Number: US-APOTEX-2024AP006368

PATIENT
  Age: 62 Year
  Sex: Female

DRUGS (5)
  1. PREGABALIN [Suspect]
     Active Substance: PREGABALIN
     Indication: Restless legs syndrome
     Dosage: UNK
     Route: 065
  2. GABAPENTIN [Suspect]
     Active Substance: GABAPENTIN
     Indication: Restless legs syndrome
     Dosage: UNK
     Route: 065
  3. ROPINIROLE [Suspect]
     Active Substance: ROPINIROLE
     Indication: Restless legs syndrome
     Dosage: UNK, BID (0.25 MG IN THE AM AND 2 MG IN THE EVENING)
     Route: 065
  4. ROPINIROLE [Suspect]
     Active Substance: ROPINIROLE
     Dosage: UNK (DOSE INCREASED)
     Route: 065
  5. ROPINIROLE [Suspect]
     Active Substance: ROPINIROLE
     Dosage: 2 MILLIGRAM, Q.H.S.
     Route: 065

REACTIONS (3)
  - Oral mucosal blistering [Unknown]
  - Sedation [Unknown]
  - Therapeutic product effect incomplete [Unknown]
